FAERS Safety Report 8339072-0 (Version None)
Quarter: 2012Q2

REPORT INFORMATION
  Report Type: 
  Country: None (occurrence: None)
  Receive Date: 20120502
  Receipt Date: 20120418
  Transmission Date: 20120825
  Serious: Yes (Hospitalization, Other)
  Sender: FDA-Public Use
  Company Number: CIP11000526

PATIENT
  Age: 63 Year
  Sex: Female

DRUGS (20)
  1. CALAN /00014302/ (VERAPAMIL HYDROCHLORIDE) [Concomitant]
  2. SENNA /00571901/ (SENNOSIDE A+B) [Concomitant]
  3. ACETAMINOPHEN W/ CODEINE [Concomitant]
  4. TUMS /00193601/ (CALCIUM CARBONATE, MAGNESIUM CARBONATE, MAGNESIUM TRI [Concomitant]
  5. TYLENOL (CAPLET) [Concomitant]
  6. HYZAAR /01625701/ (HYDROCHLOROTHIAZIDE, LOSARTAN) [Concomitant]
  7. MULTIPLE VITAMINS 9ASCORBIC ACID, ERGOCALCIFEROL, FOLIC ACID, RETINOL, [Concomitant]
  8. CIPRO [Concomitant]
  9. TESTOSTERONE [Concomitant]
  10. HYDROCODONE W/APAP (HYDROCODONE, PARACETAMOL) [Concomitant]
  11. HALFLYTELY (MACROGOL, POTASSIUM CHLORIDE, SODIUM BICARBONATE) [Concomitant]
  12. FLAXSEED OIL (LINUM USITATISSIUM SEED OIL) [Concomitant]
  13. FISH OIL (FISH OIL) [Concomitant]
  14. ESTRACE [Concomitant]
  15. ZYLET [Concomitant]
  16. CHOLECALCIFEROL (COLECALCIFEROL) [Concomitant]
  17. ACTONEL [Suspect]
     Indication: STRESS FRACTURE
     Dosage: 150 MG ONCE MONTHLY, ORAL
     Route: 048
     Dates: start: 20081030, end: 20100928
  18. EFFEXOR /01233801/ (VENLAFAXINE) [Concomitant]
  19. SENNA S (DOCUSATE SODIUM, SENNOSIDE A+B) [Concomitant]
  20. VITAMIN B COMPLEX /00056201/ (CYANOCOBALAMIN) [Concomitant]

REACTIONS (10)
  - FEMUR FRACTURE [None]
  - MUSCLE SPASMS [None]
  - ARTHRALGIA [None]
  - MUSCLE STRAIN [None]
  - FALL [None]
  - FRACTURE DELAYED UNION [None]
  - HAEMATOCRIT DECREASED [None]
  - MUSCLE OEDEMA [None]
  - HAEMOGLOBIN DECREASED [None]
  - MUSCLE ATROPHY [None]
